FAERS Safety Report 4931234-5 (Version None)
Quarter: 2006Q1

REPORT INFORMATION
  Report Type: 
  Country: None (occurrence: None)
  Receive Date: 20060227
  Receipt Date: 20060216
  Transmission Date: 20060701
  Serious: Yes (Other)
  Sender: FDA-Public Use
  Company Number: 2006024146

PATIENT
  Age: 56 Year
  Sex: Male

DRUGS (3)
  1. LYRICA [Suspect]
     Indication: HERPES ZOSTER
     Dosage: 300 MG (300 MG, 1 IN 1 D), ORAL
     Route: 048
     Dates: start: 20060101
  2. LYRICA [Suspect]
     Indication: LYMPHOMA
     Dosage: 300 MG (300 MG, 1 IN 1 D), ORAL
     Route: 048
     Dates: start: 20060101
  3. BONEFOS   BOEHRINGER INGELHEIM  (CLODRONATE DISODIUM) [Concomitant]

REACTIONS (5)
  - AMNESIA [None]
  - FLUSHING [None]
  - MUSCLE CONTRACTIONS INVOLUNTARY [None]
  - ORTHOSTATIC HYPOTENSION [None]
  - TREMOR [None]
